FAERS Safety Report 10466521 (Version 1)
Quarter: 2014Q3

REPORT INFORMATION
  Report Type: Report from Study
  Country: US (occurrence: US)
  Receive Date: 20140922
  Receipt Date: 20140922
  Transmission Date: 20150326
  Serious: Yes (Hospitalization)
  Sender: FDA-Public Use
  Company Number: US-SA-2014SA127524

PATIENT
  Age: 59 Year
  Sex: Female

DRUGS (1)
  1. LANTUS [Suspect]
     Active Substance: INSULIN GLARGINE
     Indication: TYPE 1 DIABETES MELLITUS
     Dosage: DOSE:100 UNIT(S)
     Route: 065

REACTIONS (4)
  - Palpitations [Unknown]
  - Cardiac disorder [Unknown]
  - Pain in jaw [Unknown]
  - Panic attack [Unknown]

NARRATIVE: CASE EVENT DATE: 201407
